FAERS Safety Report 15295325 (Version 2)
Quarter: 2018Q3

REPORT INFORMATION
  Report Type: Spontaneous
  Country: TR (occurrence: TR)
  Receive Date: 20180820
  Receipt Date: 20180904
  Transmission Date: 20181010
  Serious: Yes (Hospitalization)
  Sender: FDA-Public Use
  Company Number: TR-ENDO PHARMACEUTICALS INC-2018-040574

PATIENT
  Age: 36 Year
  Sex: Female

DRUGS (2)
  1. CLOMIPHENE / 00061301 [Suspect]
     Active Substance: CLOMIPHENE
     Indication: OVULATION DISORDER
     Dosage: 50 MG, OD
     Route: 065
  2. CLOMIPHENE / 00061301 [Suspect]
     Active Substance: CLOMIPHENE
     Indication: INFERTILITY

REACTIONS (2)
  - Arterial thrombosis [Recovered/Resolved]
  - Acute myocardial infarction [Recovered/Resolved]
